FAERS Safety Report 9023935 (Version 1)
Quarter: 2013Q1

REPORT INFORMATION
  Report Type: Spontaneous
  Country: US (occurrence: US)
  Receive Date: 20130121
  Receipt Date: 20130121
  Transmission Date: 20140127
  Serious: No
  Sender: FDA-Public Use
  Company Number: US-PFIZER INC-2013022320

PATIENT
  Age: 57 Year
  Sex: Female
  Weight: 71.7 kg

DRUGS (5)
  1. GEODON [Suspect]
     Dosage: UNK
  2. PAXIL [Suspect]
     Dosage: UNK
  3. NAPROXEN [Suspect]
     Dosage: UNK
  4. NIASPAN [Suspect]
     Dosage: UNK
  5. TRICOR [Suspect]
     Dosage: UNK

REACTIONS (1)
  - Drug hypersensitivity [Unknown]
